FAERS Safety Report 15196163 (Version 1)
Quarter: 2018Q3

REPORT INFORMATION
  Report Type: Spontaneous
  Country: US (occurrence: US)
  Receive Date: 20180626
  Receipt Date: 20180626
  Transmission Date: 20181010
  Serious: No
  Sender: FDA-Public Use
  Company Number: None

PATIENT
  Age: 78 Year
  Sex: Female

DRUGS (2)
  1. SIMVASTATIN 80MG QD [Concomitant]
  2. NIFEDIPINE 90MG ER (CC) TABLETS [Suspect]
     Active Substance: NIFEDIPINE
     Indication: BLOOD PRESSURE MEASUREMENT
     Route: 048
     Dates: start: 20180613, end: 20180625

REACTIONS (3)
  - Product substitution issue [None]
  - Therapy change [None]
  - Myalgia [None]

NARRATIVE: CASE EVENT DATE: 20180617
